FAERS Safety Report 5051488-7 (Version None)
Quarter: 2006Q3

REPORT INFORMATION
  Report Type: 
  Country: None (occurrence: None)
  Receive Date: 20060711
  Receipt Date: 20060707
  Transmission Date: 20061208
  Serious: Yes (Hospitalization)
  Sender: FDA-Public Use
  Company Number: S06-USA-02081-01

PATIENT
  Age: 46 Year
  Sex: Male
  Weight: 136.0791 kg

DRUGS (5)
  1. LEXAPRO [Suspect]
     Indication: MAJOR DEPRESSION
     Dosage: 10 MG QD; PO
     Route: 048
     Dates: start: 20021101, end: 20050901
  2. LEXAPRO [Suspect]
     Indication: MAJOR DEPRESSION
     Dosage: 10 MG QD; PO
     Route: 048
     Dates: start: 20060515, end: 20060522
  3. LEXAPRO [Suspect]
     Indication: MAJOR DEPRESSION
     Dosage: 20 MG QD; PO
     Route: 048
     Dates: start: 20050901, end: 20060514
  4. INSULIN [Concomitant]
  5. UNKNOWN ANTIHYPERTENSIVE MEDICATION [Concomitant]

REACTIONS (17)
  - ANURIA [None]
  - ASTHENIA [None]
  - DEHYDRATION [None]
  - DRUG INEFFECTIVE [None]
  - GUN SHOT WOUND [None]
  - HALLUCINATION [None]
  - HEADACHE [None]
  - INCREASED INSULIN REQUIREMENT [None]
  - NAUSEA [None]
  - PSYCHOTIC DISORDER [None]
  - PYREXIA [None]
  - SUICIDAL IDEATION [None]
  - SUICIDE ATTEMPT [None]
  - URINARY RETENTION [None]
  - WEIGHT DECREASED [None]
  - WEIGHT INCREASED [None]
  - WHITE BLOOD CELL COUNT INCREASED [None]
